FAERS Safety Report 15304981 (Version 1)
Quarter: 2018Q3

REPORT INFORMATION
  Report Type: Spontaneous
  Country: US (occurrence: US)
  Receive Date: 20180810
  Receipt Date: 20180810
  Transmission Date: 20181010
  Serious: Yes (Life-Threatening)
  Sender: FDA-Public Use
  Company Number: None

PATIENT
  Age: 47 Year
  Sex: Female
  Weight: 55.8 kg

DRUGS (1)
  1. METRONIDAZOLE. [Suspect]
     Active Substance: METRONIDAZOLE
     Indication: DIVERTICULITIS
     Route: 048
     Dates: start: 20180509, end: 20180515

REACTIONS (5)
  - Burning sensation [None]
  - Gastrointestinal pain [None]
  - Wrong dose [None]
  - Gastrointestinal disorder [None]
  - Extra dose administered [None]

NARRATIVE: CASE EVENT DATE: 20180515
